FAERS Safety Report 9381463 (Version 1)
Quarter: 2013Q3

REPORT INFORMATION
  Report Type: Report from Study
  Country: BR (occurrence: BR)
  Receive Date: 20130703
  Receipt Date: 20130703
  Transmission Date: 20140515
  Serious: Yes (Death, Hospitalization, Other)
  Sender: FDA-Public Use
  Company Number: PHHY2013BR069085

PATIENT
  Age: 84 Year
  Sex: Female

DRUGS (7)
  1. ENABLEX [Suspect]
     Indication: URINARY INCONTINENCE
     Dosage: 7.5 MG, DAILY
     Route: 048
  2. CALTRATE +D [Concomitant]
     Indication: OSTEOPOROSIS
     Dosage: 1 DF, QD
     Route: 048
  3. COMPLEX B                          /00653501/ [Concomitant]
     Dosage: 1 DF, QD
     Route: 048
  4. VENLIFT [Concomitant]
     Indication: DEPRESSION
     Dosage: 1 DF, QD
     Route: 048
  5. LORAX                                   /BRA/ [Concomitant]
     Indication: DEPRESSION
     Dosage: 1 DF, QD
     Route: 048
  6. TRYPTANOL                               /BRA/ [Concomitant]
     Indication: DEPRESSION
     Dosage: 1 DF, QD
     Route: 048
  7. BONVIVA [Concomitant]
     Indication: OSTEOPOROSIS
     Dosage: 1 DF MONTHLY, UNK
     Route: 048

REACTIONS (1)
  - Pneumonia [Fatal]
